FAERS Safety Report 7095910-3 (Version None)
Quarter: 2010Q4

REPORT INFORMATION
  Report Type: 
  Country: None (occurrence: None)
  Receive Date: 20101109
  Receipt Date: 20101109
  Transmission Date: 20110411
  Serious: Yes (Death)
  Sender: FDA-Public Use
  Company Number: None

PATIENT
  Sex: Male

DRUGS (1)
  1. CLOZAPINE [Suspect]
     Indication: SCHIZOPHRENIA, PARANOID TYPE
     Dosage: 450MG AT BEDTIME PO (DURATION: YEARS)
     Route: 048

REACTIONS (4)
  - ACCIDENTAL DEATH [None]
  - ASPHYXIA [None]
  - CARDIO-RESPIRATORY ARREST [None]
  - DROWNING [None]
